FAERS Safety Report 21406921 (Version 1)
Quarter: 2022Q4

REPORT INFORMATION
  Report Type: Report from Study
  Country: US (occurrence: US)
  Receive Date: 20221004
  Receipt Date: 20221004
  Transmission Date: 20230113
  Serious: No
  Sender: FDA-Public Use
  Company Number: US-ABBVIE-22K-163-4442266-00

PATIENT
  Sex: Male

DRUGS (3)
  1. VENCLEXTA [Suspect]
     Active Substance: VENETOCLAX
     Indication: Refractory cytopenia with multilineage dysplasia
     Dosage: TAKE 2 TABLET BY MOUTH DAILY ON DAYS 1-14 EVERY 28 DAYS WITH A MEAL AND WATER
     Route: 048
  2. VENCLEXTA [Suspect]
     Active Substance: VENETOCLAX
     Indication: Refractory cytopenia with multilineage dysplasia
     Route: 048
  3. VENCLEXTA [Suspect]
     Active Substance: VENETOCLAX
     Indication: Refractory cytopenia with multilineage dysplasia
     Route: 048

REACTIONS (3)
  - Off label use [Unknown]
  - Fluid retention [Unknown]
  - Peripheral swelling [Unknown]
